FAERS Safety Report 8992752 (Version 2)
Quarter: 2013Q1

REPORT INFORMATION
  Report Type: Report from Study
  Country: SI (occurrence: SI)
  Receive Date: 20130102
  Receipt Date: 20130111
  Transmission Date: 20140127
  Serious: Yes (Death)
  Sender: FDA-Public Use
  Company Number: SI-ROCHE-1175531

PATIENT
  Sex: Male

DRUGS (2)
  1. ALTEPLASE [Suspect]
     Indication: PULMONARY EMBOLISM
     Route: 040
  2. HEPARIN [Suspect]
     Indication: PULMONARY EMBOLISM
     Route: 042

REACTIONS (1)
  - Pneumonia [Fatal]
